FAERS Safety Report 17858710 (Version 1)
Quarter: 2020Q2

REPORT INFORMATION
  Report Type: Report from Study
  Country: None (occurrence: US)
  Receive Date: 20200604
  Receipt Date: 20200604
  Transmission Date: 20200714
  Serious: No
  Sender: FDA-Public Use
  Company Number: US-US WORLDMEDS, LLC-USW202002-000223

PATIENT
  Age: 73 Year
  Sex: Female

DRUGS (2)
  1. APOKYN [Suspect]
     Active Substance: APOMORPHINE HYDROCHLORIDE
     Route: 058
     Dates: start: 20190719, end: 201912
  2. APOKYN [Suspect]
     Active Substance: APOMORPHINE HYDROCHLORIDE
     Indication: PARKINSON^S DISEASE
     Dosage: INJECT 0.4 ML/DOSE UNDER THE SKIN, DO NOT EXCEED 5 DOSES PER DAY
     Route: 058

REACTIONS (1)
  - Joint swelling [Recovered/Resolved with Sequelae]

NARRATIVE: CASE EVENT DATE: 202003
